FAERS Safety Report 13770470 (Version 1)
Quarter: 2017Q3

REPORT INFORMATION
  Report Type: Spontaneous
  Country: HU (occurrence: HU)
  Receive Date: 20170719
  Receipt Date: 20170719
  Transmission Date: 20171127
  Serious: Yes (Other)
  Sender: FDA-Public Use
  Company Number: HU-B.I. PHARMACEUTICALS,INC./RIDGEFIELD-2017-BI-036651

PATIENT
  Age: 65 Year
  Sex: Male

DRUGS (2)
  1. TIOTROPIUM BROMIDE [Suspect]
     Active Substance: TIOTROPIUM BROMIDE
     Indication: CHRONIC OBSTRUCTIVE PULMONARY DISEASE
     Route: 065
  2. ATROVENT [Suspect]
     Active Substance: IPRATROPIUM BROMIDE
     Indication: CHRONIC OBSTRUCTIVE PULMONARY DISEASE
     Route: 065

REACTIONS (29)
  - Ear infection [Unknown]
  - Dyspnoea exertional [Unknown]
  - Pulmonary fibrosis [Unknown]
  - Acute sinusitis [Unknown]
  - Cough [Unknown]
  - Cough [Unknown]
  - Cough [Unknown]
  - Dyspnoea exertional [Unknown]
  - Cough [Unknown]
  - Dyspnoea [Unknown]
  - Dyspnoea exertional [Unknown]
  - Supraventricular extrasystoles [Unknown]
  - Bronchitis [Unknown]
  - Sputum increased [Unknown]
  - Pyrexia [Unknown]
  - Laryngitis [Unknown]
  - Rhinorrhoea [Unknown]
  - Sputum discoloured [Unknown]
  - Condition aggravated [Unknown]
  - Sputum purulent [Unknown]
  - Cough [Unknown]
  - Urine analysis abnormal [Unknown]
  - Sputum increased [Unknown]
  - Sputum purulent [Unknown]
  - Cough [Unknown]
  - Haemophilus test positive [Unknown]
  - Dyspnoea [Unknown]
  - Nasal congestion [Unknown]
  - Dyspnoea [Unknown]

NARRATIVE: CASE EVENT DATE: 2004
